FAERS Safety Report 6690965-X (Version None)
Quarter: 2010Q2

REPORT INFORMATION
  Report Type: 
  Country: None (occurrence: None)
  Receive Date: 20100421
  Receipt Date: 20100414
  Transmission Date: 20101027
  Serious: Yes (Hospitalization)
  Sender: FDA-Public Use
  Company Number: FR-NOVOPROD-302042

PATIENT
  Age: 81 Year
  Sex: Female

DRUGS (9)
  1. ACTRAPID [Suspect]
     Indication: TYPE 2 DIABETES MELLITUS
     Dosage: UK/IV
     Route: 042
     Dates: start: 20091024, end: 20091026
  2. LOXEN [Suspect]
     Dosage: 6 PHARMACEUTICAL DOSES PR HOUR
     Dates: start: 20091024, end: 20091026
  3. COAPROVEL [Concomitant]
     Dosage: UNK
     Route: 048
  4. PREVISCAN                          /00261401/ [Concomitant]
     Dosage: 20 MG, UNK
  5. LERCAN [Concomitant]
  6. NORSET [Concomitant]
  7. IMOVANE [Concomitant]
     Dosage: 7.5 MG, UNK
  8. LEVOTHYROX [Concomitant]
     Dosage: 125 UG, UNK
  9. MOPRAL                             /00661201/ [Concomitant]
     Dosage: 20 MG, UNK

REACTIONS (2)
  - HYPERTHERMIA [None]
  - INFUSION SITE PHLEBITIS [None]
